FAERS Safety Report 7758945-0 (Version None)
Quarter: 2011Q3

REPORT INFORMATION
  Report Type: 
  Country: None (occurrence: None)
  Receive Date: 20110915
  Receipt Date: 20110829
  Transmission Date: 20111222
  Serious: Yes (Other)
  Sender: FDA-Public Use
  Company Number: TPA2011A05697

PATIENT
  Age: 6 Decade
  Sex: Male

DRUGS (1)
  1. ACTOS [Suspect]
     Dosage: 15 MG, 1 IN 1 D, PER ORAL
     Route: 048

REACTIONS (1)
  - CEREBROVASCULAR ACCIDENT [None]
